FAERS Safety Report 12611404 (Version 1)
Quarter: 2016Q3

REPORT INFORMATION
  Report Type: Spontaneous
  Country: US (occurrence: US)
  Receive Date: 20160801
  Receipt Date: 20160801
  Transmission Date: 20161109
  Serious: No
  Sender: FDA-Public Use
  Company Number: US-BAYER-2016-148559

PATIENT
  Age: 25 Year
  Sex: Male
  Weight: 68.27 kg

DRUGS (2)
  1. LOTRIMIN ULTRA ANTIFUNGAL [Suspect]
     Active Substance: BUTENAFINE HYDROCHLORIDE
     Indication: RASH
     Dosage: 1 DF, ONCE
     Route: 061
     Dates: start: 20160729
  2. NEOSPORIN [METHOXAMINE HYDROCHLORIDE,NEOMYCIN SULFATE,POLYMYXIN B [Concomitant]

REACTIONS (2)
  - Product use issue [None]
  - Therapeutic response unexpected [None]

NARRATIVE: CASE EVENT DATE: 20160729
